FAERS Safety Report 17662683 (Version 1)
Quarter: 2020Q2

REPORT INFORMATION
  Report Type: Spontaneous
  Country: CA (occurrence: CA)
  Receive Date: 20200413
  Receipt Date: 20200413
  Transmission Date: 20200713
  Serious: Yes (Life-Threatening)
  Sender: FDA-Public Use
  Company Number: NVSC2020CA096784

PATIENT
  Age: 45 Year
  Sex: Female

DRUGS (24)
  1. DACLIZUMAB [Suspect]
     Active Substance: DACLIZUMAB
     Dosage: 5 MG
     Route: 042
  2. PROGRAF [Suspect]
     Active Substance: TACROLIMUS
     Dosage: 11.1 UNK
     Route: 048
  3. PROGRAF [Suspect]
     Active Substance: TACROLIMUS
     Dosage: 1000 MG, BID
     Route: 048
  4. PROGRAF [Suspect]
     Active Substance: TACROLIMUS
     Dosage: 2 MG, BID
     Route: 048
  5. PROGRAF [Suspect]
     Active Substance: TACROLIMUS
     Dosage: 2 MG, Q12H
     Route: 048
  6. MYCOPHENOLATE MOFETIL. [Suspect]
     Active Substance: MYCOPHENOLATE MOFETIL
     Dosage: 1000 MG, Q2H
     Route: 048
  7. ANTITHYMOCYTE IMMUNOGLOBULIN [Suspect]
     Active Substance: THYMOCYTE IMMUNE GLOBULIN NOS
     Indication: TRANSPLANT
     Dosage: 6 MG
     Route: 065
  8. MYCOPHENOLATE MOFETIL. [Suspect]
     Active Substance: MYCOPHENOLATE MOFETIL
     Indication: PRODUCT USED FOR UNKNOWN INDICATION
     Dosage: 1000 MG, BID
     Route: 048
  9. ANTITHYMOCYTE IMMUNOGLOBULIN [Suspect]
     Active Substance: THYMOCYTE IMMUNE GLOBULIN NOS
     Dosage: 50 MG
     Route: 065
  10. ANTITHYMOCYTE IMMUNOGLOBULIN [Suspect]
     Active Substance: THYMOCYTE IMMUNE GLOBULIN NOS
     Dosage: 60 MG
     Route: 065
  11. ENBREL [Suspect]
     Active Substance: ETANERCEPT
     Dosage: 25 MG
     Route: 065
  12. PROGRAF [Suspect]
     Active Substance: TACROLIMUS
     Dosage: 2.5 MG, Q12H
     Route: 048
  13. PROGRAF [Suspect]
     Active Substance: TACROLIMUS
     Dosage: 1000 MG, Q12H
     Route: 048
  14. REMICADE [Suspect]
     Active Substance: INFLIXIMAB
     Route: 042
  15. RAPAMUNE [Suspect]
     Active Substance: SIROLIMUS
     Indication: TRANSPLANT
     Route: 065
  16. SULFASALAZINE. [Suspect]
     Active Substance: SULFASALAZINE
     Indication: RHEUMATOID ARTHRITIS
     Dosage: 1 G
     Route: 065
  17. PROGRAF [Suspect]
     Active Substance: TACROLIMUS
     Indication: TRANSPLANT
     Dosage: 3 MG, BID
     Route: 048
  18. PROGRAF [Suspect]
     Active Substance: TACROLIMUS
     Dosage: UNK
     Route: 048
  19. PROGRAF [Suspect]
     Active Substance: TACROLIMUS
     Dosage: 3 MG, Q12H
     Route: 048
  20. PROGRAF [Suspect]
     Active Substance: TACROLIMUS
     Dosage: 2.5 MG, BID
     Route: 048
  21. ENBREL [Suspect]
     Active Substance: ETANERCEPT
     Dosage: 50 MG, QID
     Route: 058
  22. ENBREL [Suspect]
     Active Substance: ETANERCEPT
     Dosage: 25 MG, QID
     Route: 048
  23. NEORAL [Suspect]
     Active Substance: CYCLOSPORINE
     Indication: PRODUCT USED FOR UNKNOWN INDICATION
     Route: 065
  24. DACLIZUMAB [Suspect]
     Active Substance: DACLIZUMAB
     Route: 042

REACTIONS (13)
  - Liver function test abnormal [Not Recovered/Not Resolved]
  - Alopecia [Not Recovered/Not Resolved]
  - Rheumatoid arthritis [Not Recovered/Not Resolved]
  - Condition aggravated [Not Recovered/Not Resolved]
  - Pneumonia [Not Recovered/Not Resolved]
  - Sleep disorder due to general medical condition, insomnia type [Not Recovered/Not Resolved]
  - Transplant dysfunction [Not Recovered/Not Resolved]
  - Drug ineffective [Not Recovered/Not Resolved]
  - Acne [Not Recovered/Not Resolved]
  - Ovarian cyst [Not Recovered/Not Resolved]
  - Transplant rejection [Not Recovered/Not Resolved]
  - Loss of personal independence in daily activities [Not Recovered/Not Resolved]
  - Pain [Not Recovered/Not Resolved]
